FAERS Safety Report 14846716 (Version 1)
Quarter: 2018Q2

REPORT INFORMATION
  Report Type: Spontaneous
  Country: US (occurrence: US)
  Receive Date: 20180504
  Receipt Date: 20180504
  Transmission Date: 20180711
  Serious: No
  Sender: FDA-Public Use
  Company Number: US-BAYER-2018-079853

PATIENT
  Age: 26 Year
  Sex: Female

DRUGS (1)
  1. MIRENA [Suspect]
     Active Substance: LEVONORGESTREL
     Indication: CONTRACEPTION
     Dosage: 20 MCG/24HR, CONT
     Route: 015
     Dates: start: 201801

REACTIONS (6)
  - Hypoaesthesia [None]
  - Weight decreased [Not Recovered/Not Resolved]
  - Influenza like illness [None]
  - Migraine [Not Recovered/Not Resolved]
  - Dizziness [None]
  - Vomiting [None]
